FAERS Safety Report 25478865 (Version 1)
Quarter: 2025Q2

REPORT INFORMATION
  Report Type: Spontaneous
  Country: CA (occurrence: CA)
  Receive Date: 20250625
  Receipt Date: 20250625
  Transmission Date: 20250717
  Serious: Yes (Hospitalization, Other)
  Sender: BAYER HEALTHCARE PHARMACEUTICALS INC.
  Company Number: CA-BAYER-2025A083926

PATIENT
  Age: 73 Year
  Sex: Male

DRUGS (8)
  1. CIPROFLOXACIN [Suspect]
     Active Substance: CIPROFLOXACIN
     Indication: Bacterial prostatitis
  2. ATORVASTATIN [Concomitant]
     Active Substance: ATORVASTATIN
  3. BREO ELLIPTA [Concomitant]
     Active Substance: FLUTICASONE FUROATE\VILANTEROL TRIFENATATE
  4. ACETAMINOPHEN [Concomitant]
     Active Substance: ACETAMINOPHEN
  5. HYDROCHLOROTHIAZIDE [Concomitant]
     Active Substance: HYDROCHLOROTHIAZIDE
  6. PANTOPRAZOLE [Concomitant]
     Active Substance: PANTOPRAZOLE
  7. RAMIPRIL [Concomitant]
     Active Substance: RAMIPRIL
  8. ALBUTEROL [Concomitant]
     Active Substance: ALBUTEROL

REACTIONS (5)
  - Hypomagnesaemia [Recovering/Resolving]
  - Blood creatinine increased [Recovering/Resolving]
  - Arrhythmia [Recovering/Resolving]
  - Acute kidney injury [Recovering/Resolving]
  - Syncope [Recovering/Resolving]
